FAERS Safety Report 6814172-2 (Version None)
Quarter: 2010Q3

REPORT INFORMATION
  Report Type: 
  Country: None (occurrence: None)
  Receive Date: 20100702
  Receipt Date: 20100113
  Transmission Date: 20110219
  Serious: Yes (Other)
  Sender: FDA-Public Use
  Company Number: US-ASTRAZENECA-2010SE30675

PATIENT
  Age: 20842 Day
  Sex: Female

DRUGS (3)
  1. SEROQUEL [Suspect]
     Dosage: 100 TO 300 MG DISPENSED
     Route: 048
     Dates: start: 20020617
  2. REMERON [Concomitant]
     Dates: start: 20020617
  3. DESYREL [Concomitant]
     Dates: start: 20020617

REACTIONS (15)
  - ANGIOPATHY [None]
  - CONGENITAL HIATUS HERNIA [None]
  - DEPRESSION [None]
  - DIABETIC NEUROPATHY [None]
  - DRY MOUTH [None]
  - EMPHYSEMA [None]
  - FATIGUE [None]
  - GASTROOESOPHAGEAL REFLUX DISEASE [None]
  - MALAISE [None]
  - OBESITY [None]
  - PARAESTHESIA [None]
  - PERIPHERAL VASCULAR DISORDER [None]
  - TYPE 2 DIABETES MELLITUS [None]
  - URGE INCONTINENCE [None]
  - VISION BLURRED [None]
